FAERS Safety Report 24955796 (Version 1)
Quarter: 2025Q1

REPORT INFORMATION
  Report Type: Spontaneous
  Country: US (occurrence: None)
  Receive Date: 20250210
  Receipt Date: 20250210
  Transmission Date: 20250408
  Serious: Yes (Hospitalization)
  Sender: FDA-CTU
  Company Number: None

PATIENT
  Age: 60 Year
  Sex: Male
  Weight: 112 kg

DRUGS (2)
  1. XELODA [Suspect]
     Active Substance: CAPECITABINE
     Indication: Anal squamous cell carcinoma
     Route: 048
     Dates: start: 20250121
  2. MITOMYCIN C [Suspect]
     Active Substance: MITOMYCIN
     Indication: Anal squamous cell carcinoma
     Route: 042
     Dates: start: 20250121, end: 20250121

REACTIONS (7)
  - Proctalgia [None]
  - Rectal haemorrhage [None]
  - Intestinal mass [None]
  - Hypophosphataemia [None]
  - Hyponatraemia [None]
  - Blood lactic acid increased [None]
  - Pancytopenia [None]

NARRATIVE: CASE EVENT DATE: 20250209
